FAERS Safety Report 5374452-7 (Version None)
Quarter: 2007Q2

REPORT INFORMATION
  Report Type: 
  Country: None (occurrence: None)
  Receive Date: 20070629
  Receipt Date: 20070518
  Transmission Date: 20071010
  Serious: Yes (Other)
  Sender: FDA-Public Use
  Company Number: CA-JNJFOC-20070505650

PATIENT
  Age: 38 Year
  Sex: Female

DRUGS (2)
  1. FENTANYL CITRATE [Suspect]
     Indication: PAIN
     Route: 065
  2. TYLENOL W/ CODEINE [Suspect]
     Indication: DRUG USE FOR UNKNOWN INDICATION

REACTIONS (7)
  - ANAPHYLACTIC REACTION [None]
  - ANXIETY [None]
  - ASTHMA [None]
  - BILIARY COLIC [None]
  - DYSPNOEA [None]
  - PANIC ATTACK [None]
  - TACHYCARDIA [None]
